FAERS Safety Report 9686571 (Version 1)
Quarter: 2013Q4

REPORT INFORMATION
  Report Type: Spontaneous
  Country: IT (occurrence: IT)
  Receive Date: 20131113
  Receipt Date: 20131113
  Transmission Date: 20140711
  Serious: Yes (Other)
  Sender: FDA-Public Use
  Company Number: IT-TEVA-444109ISR

PATIENT
  Age: 40 Year
  Sex: Male

DRUGS (1)
  1. AMOXICILLINA TRIIDRATO [Suspect]
     Indication: COUGH
     Dosage: 1 GRAM DAILY;
     Route: 048
     Dates: start: 20131015, end: 20131015

REACTIONS (3)
  - Mucosal hyperaemia [Recovered/Resolved]
  - Rash [Recovered/Resolved]
  - Hypersensitivity [Recovered/Resolved]
